FAERS Safety Report 6347497-8 (Version None)
Quarter: 2009Q3

REPORT INFORMATION
  Report Type: 
  Country: None (occurrence: None)
  Receive Date: 20090910
  Receipt Date: 20090904
  Transmission Date: 20100115
  Serious: Yes (Hospitalization, Other)
  Sender: FDA-Public Use
  Company Number: US-ELI_LILLY_AND_COMPANY-US200909001272

PATIENT
  Age: 17 Year
  Sex: Female

DRUGS (3)
  1. HUMALOG [Suspect]
  2. HUMALOG [Suspect]
  3. LANTUS [Concomitant]

REACTIONS (4)
  - DRUG DISPENSING ERROR [None]
  - EXPIRED DRUG ADMINISTERED [None]
  - KETOACIDOSIS [None]
  - VIRAL INFECTION [None]
